FAERS Safety Report 4731207-1 (Version None)
Quarter: 2005Q3

REPORT INFORMATION
  Report Type: 
  Country: None (occurrence: None)
  Receive Date: 20050729
  Receipt Date: 20050726
  Transmission Date: 20060218
  Serious: Yes (Death)
  Sender: FDA-Public Use
  Company Number: 05-06-1104

PATIENT
  Age: 49 Year
  Sex: Male

DRUGS (8)
  1. CLOZAPINE [Suspect]
     Indication: SCHIZOPHRENIA
     Dosage: 475MG QD ORAL
     Route: 048
     Dates: start: 19991201, end: 20050621
  2. GEODON [Concomitant]
  3. ELAVIL [Concomitant]
  4. NEURONTIN [Concomitant]
  5. LEXAPRO [Concomitant]
  6. INDERAL [Concomitant]
  7. PREVACID [Concomitant]
  8. PHENERGAN HCL [Concomitant]

REACTIONS (2)
  - RESPIRATORY ARREST [None]
  - UPPER GASTROINTESTINAL HAEMORRHAGE [None]
